FAERS Safety Report 8241242-7 (Version None)
Quarter: 2012Q1

REPORT INFORMATION
  Report Type: 
  Country: None (occurrence: None)
  Receive Date: 20120328
  Receipt Date: 20120315
  Transmission Date: 20120608
  Serious: No
  Sender: FDA-Public Use
  Company Number: US-PFIZER INC-2012069451

PATIENT
  Age: 42 Year
  Sex: Female

DRUGS (2)
  1. LO/OVRAL-28 [Suspect]
     Indication: MENSTRUATION IRREGULAR
  2. LO/OVRAL-28 [Suspect]
     Indication: OFF LABEL USE
     Dosage: UNK
     Dates: start: 20111101, end: 20120201

REACTIONS (2)
  - PRODUCT QUALITY ISSUE [None]
  - METRORRHAGIA [None]
